FAERS Safety Report 5105673-6 (Version None)
Quarter: 2006Q3

REPORT INFORMATION
  Report Type: 
  Country: None (occurrence: None)
  Receive Date: 20060915
  Receipt Date: 20060711
  Transmission Date: 20061208
  Serious: Yes (Hospitalization)
  Sender: FDA-Public Use
  Company Number: 2006CG01211

PATIENT
  Age: 95 Year
  Sex: Male
  Weight: 75 kg

DRUGS (4)
  1. TENORMIN [Suspect]
     Route: 048
     Dates: start: 19980101
  2. FOSINOPRIL SODIUM AND HYDROCHLOROTHIAZIDE [Suspect]
     Indication: HYPERTENSION
     Route: 048
     Dates: start: 20040501, end: 20060518
  3. FOSINOPRIL SODIUM AND HYDROCHLOROTHIAZIDE [Suspect]
     Route: 048
     Dates: start: 20040501, end: 20060518
  4. ASPIRIN [Suspect]
     Route: 048
     Dates: start: 19980101

REACTIONS (1)
  - MOUTH ULCERATION [None]
